FAERS Safety Report 19783952 (Version 1)
Quarter: 2021Q3

REPORT INFORMATION
  Report Type: Spontaneous
  Country: US (occurrence: US)
  Receive Date: 20210901
  Receipt Date: 20210901
  Transmission Date: 20211014
  Serious: Yes (Hospitalization, Other)
  Sender: FDA-Public Use
  Company Number: None

PATIENT
  Age: 1 Day
  Sex: Male
  Weight: 3.5 kg

DRUGS (3)
  1. SEROQUEL [Suspect]
     Active Substance: QUETIAPINE FUMARATE
  2. LAMICTAL [Suspect]
     Active Substance: LAMOTRIGINE
  3. VISTARIL [Suspect]
     Active Substance: HYDROXYZINE PAMOATE

REACTIONS (3)
  - Hypoglycaemia [None]
  - Sepsis [None]
  - Feeding disorder [None]

NARRATIVE: CASE EVENT DATE: 20200514
